FAERS Safety Report 4342478-8 (Version None)
Quarter: 2004Q2

REPORT INFORMATION
  Report Type: 
  Country: None (occurrence: None)
  Receive Date: 20040420
  Receipt Date: 20040414
  Transmission Date: 20050107
  Serious: Yes (Death)
  Sender: FDA-Public Use
  Company Number: 04-04-0545

PATIENT
  Age: 43 Year
  Sex: Male

DRUGS (2)
  1. CLOZAPINE [Suspect]
     Indication: SCHIZOAFFECTIVE DISORDER
     Dosage: 750 MG QD ORAL
     Route: 048
     Dates: start: 20030601, end: 20040301
  2. CLOZAPINE [Suspect]
     Indication: TARDIVE DYSKINESIA
     Dosage: 750 MG QD ORAL
     Route: 048
     Dates: start: 20030601, end: 20040301

REACTIONS (3)
  - FATIGUE [None]
  - HAEMORRHAGE [None]
  - NEOPLASM GROWTH ACCELERATED [None]
